FAERS Safety Report 20613571 (Version 1)
Quarter: 2022Q1

REPORT INFORMATION
  Report Type: Spontaneous
  Country: CN (occurrence: CN)
  Receive Date: 20220319
  Receipt Date: 20220319
  Transmission Date: 20220423
  Serious: Yes (Other)
  Sender: FDA-Public Use
  Company Number: CN-VIWITPHARMA-2022VWTLIT00006

PATIENT
  Age: 15 Year
  Sex: Female

DRUGS (2)
  1. LEVETIRACETAM [Suspect]
     Active Substance: LEVETIRACETAM
     Indication: Dyskinesia
     Route: 065
  2. LEVETIRACETAM [Suspect]
     Active Substance: LEVETIRACETAM
     Route: 065

REACTIONS (4)
  - Tardive dyskinesia [Recovered/Resolved]
  - Epilepsy [Recovered/Resolved]
  - Drug ineffective [Recovered/Resolved]
  - Seizure [Recovered/Resolved]
